FAERS Safety Report 9971887 (Version 1)
Quarter: 2014Q1

REPORT INFORMATION
  Report Type: Spontaneous
  Country: DE (occurrence: None)
  Receive Date: 20140304
  Receipt Date: 20140304
  Transmission Date: 20141002
  Serious: Yes (Other)
  Sender: FDA-Public Use
  Company Number: 2014P1001587

PATIENT
  Sex: 0

DRUGS (1)
  1. HEPARIN [Suspect]

REACTIONS (3)
  - Heparin-induced thrombocytopenia [None]
  - Intracardiac thrombus [None]
  - Heparin-induced thrombocytopenia test positive [None]
